FAERS Safety Report 6578050-9 (Version None)
Quarter: 2010Q1

REPORT INFORMATION
  Report Type: 
  Country: None (occurrence: None)
  Receive Date: 20100211
  Receipt Date: 20100204
  Transmission Date: 20100710
  Serious: Yes (Other)
  Sender: FDA-Public Use
  Company Number: TR-ELI_LILLY_AND_COMPANY-TR201002001756

PATIENT
  Sex: Female

DRUGS (4)
  1. HUMULIN R [Suspect]
     Indication: GESTATIONAL DIABETES
     Dosage: 8 U, DAILY EACH MORNING
     Route: 058
     Dates: end: 20091204
  2. HUMULIN R [Suspect]
     Dosage: 6 U, DAILY EACH NOON
     Route: 058
     Dates: end: 20091204
  3. HUMULIN R [Suspect]
     Dosage: 6 U, DAILY EACH EVENING
     Route: 058
     Dates: end: 20091204
  4. HUMULIN N [Suspect]
     Indication: GESTATIONAL DIABETES
     Dosage: 6 U, DAILY EACH EVENING
     Route: 058
     Dates: end: 20091204

REACTIONS (2)
  - ANTEPARTUM HAEMORRHAGE [None]
  - DRUG EXPOSURE DURING PREGNANCY [None]
